FAERS Safety Report 21739185 (Version 1)
Quarter: 2022Q4

REPORT INFORMATION
  Report Type: Spontaneous
  Country: GB (occurrence: GB)
  Receive Date: 20221216
  Receipt Date: 20221216
  Transmission Date: 20230112
  Serious: Yes (Other)
  Sender: FDA-Public Use
  Company Number: GB-MHRA-TPP47652079C5641516YC1669890998536

PATIENT
  Age: 58 Year
  Sex: Female
  Weight: 94 kg

DRUGS (8)
  1. TRAMADOL [Suspect]
     Active Substance: TRAMADOL
     Indication: Ill-defined disorder
     Dosage: UNK
     Route: 065
     Dates: start: 20221201
  2. CANDESARTAN [Concomitant]
     Active Substance: CANDESARTAN
     Indication: Ill-defined disorder
     Dosage: 1 DOSAGE FORM, ONCE A DAY (EVERY MORNING TO REDUCE BLOOD P)
     Route: 065
     Dates: start: 20220517
  3. COCODAMOL [Concomitant]
     Active Substance: ACETAMINOPHEN\CODEINE PHOSPHATE
     Indication: Ill-defined disorder
     Dosage: UNK (ONE (WITH ONE PARACETAMOL) - TWO CAPSULES TO BE...)
     Route: 065
     Dates: start: 20221015, end: 20221121
  4. ESTRADIOL [Concomitant]
     Active Substance: ESTRADIOL
     Indication: Ill-defined disorder
     Dosage: 1 DOSAGE FORM, DAILY
     Route: 065
     Dates: start: 20220426
  5. ESTRADIOL [Concomitant]
     Active Substance: ESTRADIOL
     Indication: Ill-defined disorder
     Dosage: UNK (APPLY TWICE WEEKLY)
     Route: 065
     Dates: start: 20220426, end: 20220915
  6. IBUPROFEN [Concomitant]
     Active Substance: IBUPROFEN
     Indication: Ill-defined disorder
     Dosage: UNK (TAKE ONE ( OR TWO)  EARLY EVENING ( AFTER FOOD ...)
     Route: 065
     Dates: start: 20220915
  7. POLYETHYLENE GLYCOL 3350\POTASSIUM CHLORIDE\SODIUM BICARBONATE\SODIUM [Concomitant]
     Active Substance: POLYETHYLENE GLYCOL 3350\POTASSIUM CHLORIDE\SODIUM BICARBONATE\SODIUM CHLORIDE
     Indication: Ill-defined disorder
     Dosage: UNK (TAKE ONE OR TWO SACHETS DISSOLVED IN WATER (125...)
     Route: 065
     Dates: start: 20221015
  8. TRAMADOL [Concomitant]
     Active Substance: TRAMADOL
     Indication: Ill-defined disorder
     Dosage: UNK (TAKE ONE ( OR TWO IF REQUIRED / WELL TOLERATED)...)
     Route: 065
     Dates: start: 20221111, end: 20221201

REACTIONS (1)
  - Adverse drug reaction [Recovered/Resolved]

NARRATIVE: CASE EVENT DATE: 20221201
